FAERS Safety Report 9855797 (Version 2)
Quarter: 2014Q1

REPORT INFORMATION
  Report Type: Spontaneous
  Country: DE (occurrence: DE)
  Receive Date: 20140130
  Receipt Date: 20140310
  Transmission Date: 20141002
  Serious: Yes (Other)
  Sender: FDA-Public Use
  Company Number: PHHY2014DE009532

PATIENT
  Sex: Female

DRUGS (2)
  1. TASIGNA [Suspect]
     Dosage: 150 MG, BID
     Dates: start: 201305
  2. HYDROXYUREA [Concomitant]
     Route: 048

REACTIONS (2)
  - Myelofibrosis [Unknown]
  - Anaemia [Recovering/Resolving]
